FAERS Safety Report 5869926-6 (Version None)
Quarter: 2008Q3

REPORT INFORMATION
  Report Type: 
  Country: None (occurrence: None)
  Receive Date: 20080904
  Receipt Date: 20080827
  Transmission Date: 20090109
  Serious: Yes (Other)
  Sender: FDA-Public Use
  Company Number: PHHY2008GB18302

PATIENT
  Sex: Female
  Weight: 128 kg

DRUGS (6)
  1. CLOZARIL [Suspect]
     Indication: SCHIZOPHRENIA
     Dosage: UNK
     Route: 048
     Dates: start: 20000706, end: 20051205
  2. CLOZARIL [Suspect]
     Dosage: 25 MG/DAY
     Route: 048
     Dates: start: 20061204
  3. VALPROATE SODIUM [Concomitant]
     Indication: CONVULSION
     Dosage: 1250 MG/DAY
     Route: 048
  4. VALPROATE SODIUM [Concomitant]
     Indication: AFFECTIVE DISORDER
  5. PAROXETINE HCL [Concomitant]
     Indication: DEPRESSION
     Dosage: 40 MG/DAY
     Route: 048
  6. PAROXETINE HCL [Concomitant]
     Indication: ANXIETY

REACTIONS (3)
  - HYPERPHAGIA [None]
  - OBESITY [None]
  - WEIGHT INCREASED [None]
